FAERS Safety Report 8146463-X (Version None)
Quarter: 2012Q1

REPORT INFORMATION
  Report Type: 
  Country: None (occurrence: None)
  Receive Date: 20120217
  Receipt Date: 20110602
  Transmission Date: 20120608
  Serious: No
  Sender: FDA-Public Use
  Company Number: US-ABBOTT-11P-163-0727855-00

PATIENT
  Sex: Female
  Weight: 63.56 kg

DRUGS (4)
  1. LIBRAX [Concomitant]
     Indication: IRRITABLE BOWEL SYNDROME
  2. CALCIUM [Concomitant]
     Indication: MINERAL SUPPLEMENTATION
  3. SIMCOR [Suspect]
     Indication: BLOOD CHOLESTEROL INCREASED
     Dosage: 1 - 500/20 MG TAB DAILY
     Dates: start: 20110520
  4. AVAPRO [Concomitant]
     Indication: HYPERTENSION

REACTIONS (2)
  - ARTHRALGIA [None]
  - JOINT SWELLING [None]
